FAERS Safety Report 21760836 (Version 1)
Quarter: 2022Q4

REPORT INFORMATION
  Report Type: Spontaneous
  Country: US (occurrence: None)
  Receive Date: 20221220
  Receipt Date: 20221220
  Transmission Date: 20230113
  Serious: Yes (Other)
  Sender: FDA-Public Use
  Company Number: None

PATIENT
  Age: 72 Year
  Sex: Male
  Weight: 80.3 kg

DRUGS (1)
  1. REVLIMID [Suspect]
     Active Substance: LENALIDOMIDE
     Indication: Plasma cell myeloma
     Dosage: 5MG DAILY X21 DAYS ORAL
     Route: 048
     Dates: start: 20190715, end: 20221207

REACTIONS (2)
  - Upper respiratory tract infection [None]
  - Sinus pain [None]

NARRATIVE: CASE EVENT DATE: 20221204
